FAERS Safety Report 5270169-8 (Version None)
Quarter: 2007Q1

REPORT INFORMATION
  Report Type: 
  Country: None (occurrence: None)
  Receive Date: 20070320
  Receipt Date: 20070315
  Transmission Date: 20070707
  Serious: Yes (Death)
  Sender: FDA-Public Use
  Company Number: HQWYE084119MAR07

PATIENT

DRUGS (1)
  1. MYLOTARG [Suspect]
     Dosage: UNKNOWN
     Route: 065

REACTIONS (2)
  - RESPIRATORY FAILURE [None]
  - SEPSIS [None]
